FAERS Safety Report 7073029-5 (Version None)
Quarter: 2010Q4

REPORT INFORMATION
  Report Type: 
  Country: None (occurrence: None)
  Receive Date: 20101028
  Receipt Date: 20101028
  Transmission Date: 20110411
  Serious: Yes (Other)
  Sender: FDA-Public Use
  Company Number: None

PATIENT
  Age: 59 Year
  Sex: Female
  Weight: 62.5964 kg

DRUGS (1)
  1. VENLAFAXINE [Suspect]
     Indication: DEPRESSION
     Dosage: 75MG CAP 3 PER DAY PO
     Route: 048
     Dates: start: 20100301, end: 20100823

REACTIONS (3)
  - ANGER [None]
  - DEPRESSION [None]
  - PRODUCT SUBSTITUTION ISSUE [None]
